FAERS Safety Report 18655570 (Version 2)
Quarter: 2021Q1

REPORT INFORMATION
  Report Type: Spontaneous
  Country: AR (occurrence: AR)
  Receive Date: 20201223
  Receipt Date: 20210105
  Transmission Date: 20210419
  Serious: Yes (Other)
  Sender: FDA-Public Use
  Company Number: AR-PFIZER INC-2020505553

PATIENT
  Age: 12 Year
  Sex: Male

DRUGS (1)
  1. GENOTROPIN [Suspect]
     Active Substance: SOMATROPIN
     Indication: FOETAL GROWTH RESTRICTION
     Dosage: 1 TO 1.4 MG, 7 TIMES PER WEEK
     Dates: start: 20191015

REACTIONS (2)
  - Epilepsy [Unknown]
  - Off label use [Unknown]

NARRATIVE: CASE EVENT DATE: 20191015
